FAERS Safety Report 24010523 (Version 3)
Quarter: 2025Q1

REPORT INFORMATION
  Report Type: Spontaneous
  Country: US (occurrence: US)
  Receive Date: 20240625
  Receipt Date: 20250129
  Transmission Date: 20250409
  Serious: No
  Sender: PFIZER
  Company Number: US-PFIZER INC-PV202400082096

PATIENT
  Age: 90 Year
  Sex: Female

DRUGS (2)
  1. BRAFTOVI [Suspect]
     Active Substance: ENCORAFENIB
     Indication: Lung neoplasm malignant
     Dosage: 225 MG, 1X/DAY (TAKE 3 X 75 MG CAPSULES ONCE A DAY)
     Route: 048
  2. MEKTOVI [Suspect]
     Active Substance: BINIMETINIB
     Indication: Lung neoplasm malignant
     Dosage: 15 MG, 2X/DAY (TAKE 1 TAB OF 15MG TWICE A DAY)
     Route: 048

REACTIONS (2)
  - Illness [Unknown]
  - Off label use [Unknown]
